FAERS Safety Report 13890230 (Version 2)
Quarter: 2017Q4

REPORT INFORMATION
  Report Type: Report from Study
  Country: US (occurrence: BR)
  Receive Date: 20170822
  Receipt Date: 20171004
  Transmission Date: 20180320
  Serious: Yes (Life-Threatening, Other)
  Sender: FDA-Public Use
  Company Number: US-SUNOVION-2017SUN003674

PATIENT
  Sex: Female
  Weight: 110 kg

DRUGS (3)
  1. INDACATEROL AND GLYCOPYRROLATE [Suspect]
     Active Substance: GLYCOPYRROLATE\INDACATEROL MALEATE
     Indication: BRONCHITIS CHRONIC
  2. VIAGRA [Concomitant]
     Active Substance: SILDENAFIL CITRATE
  3. INDACATEROL AND GLYCOPYRROLATE [Suspect]
     Active Substance: GLYCOPYRROLATE\INDACATEROL MALEATE
     Indication: EMPHYSEMA
     Dosage: 1 DF (GLYCOPYRRONIUM BROMIDE 50 UG/ INDACATEROL 110 UG), QD
     Route: 055
     Dates: start: 201708

REACTIONS (9)
  - Hypoaesthesia [Unknown]
  - Diabetes mellitus [Unknown]
  - Malaise [Unknown]
  - Weight decreased [Unknown]
  - Fatigue [Recovering/Resolving]
  - Productive cough [Unknown]
  - Anger [Unknown]
  - Dysgeusia [Unknown]
  - Wrong technique in product usage process [Unknown]
